FAERS Safety Report 4741764-7 (Version None)
Quarter: 2005Q3

REPORT INFORMATION
  Report Type: 
  Country: None (occurrence: None)
  Receive Date: 20050804
  Receipt Date: 20050513
  Transmission Date: 20060218
  Serious: No
  Sender: FDA-Public Use
  Company Number: WAES 0505USA01706

PATIENT
  Age: 29 Year
  Sex: Female
  Weight: 65.318 kg

DRUGS (12)
  1. EMEND [Suspect]
     Indication: CHEMOTHERAPY
     Dosage: SEE IMAGE
     Route: 048
     Dates: start: 20050401, end: 20050401
  2. EMEND [Suspect]
     Indication: PROPHYLAXIS OF NAUSEA AND VOMITING
     Dosage: SEE IMAGE
     Route: 048
     Dates: start: 20050401, end: 20050401
  3. EMEND [Suspect]
     Indication: CHEMOTHERAPY
     Dosage: SEE IMAGE
     Route: 048
     Dates: start: 20050401, end: 20050401
  4. EMEND [Suspect]
     Indication: PROPHYLAXIS OF NAUSEA AND VOMITING
     Dosage: SEE IMAGE
     Route: 048
     Dates: start: 20050401, end: 20050401
  5. EMEND [Suspect]
     Indication: CHEMOTHERAPY
     Dosage: SEE IMAGE
     Route: 048
     Dates: start: 20050314
  6. EMEND [Suspect]
     Indication: PROPHYLAXIS OF NAUSEA AND VOMITING
     Dosage: SEE IMAGE
     Route: 048
     Dates: start: 20050314
  7. BENADRYL [Concomitant]
  8. DECADRON (DEXAMETHASONE SODIUM [Concomitant]
  9. TAXOL [Concomitant]
  10. ZANTAC [Concomitant]
  11. [THERAPY UNSPECIFIED] [Concomitant]
  12. CARBOPLATIN [Concomitant]

REACTIONS (2)
  - FATIGUE [None]
  - LETHARGY [None]
